FAERS Safety Report 12049896 (Version 10)
Quarter: 2021Q4

REPORT INFORMATION
  Report Type: Spontaneous
  Country: US (occurrence: US)
  Receive Date: 20160208
  Receipt Date: 20211125
  Transmission Date: 20220304
  Serious: Yes (Hospitalization, Other)
  Sender: FDA-Public Use
  Company Number: US-PFIZER INC-2016063811

PATIENT
  Age: 38 Year
  Sex: Female
  Weight: 119.72 kg

DRUGS (34)
  1. LYRICA [Suspect]
     Active Substance: PREGABALIN
     Indication: Neuropathy peripheral
     Dosage: 250 MG, DAILY (^50 MG TABLET FIVE TIMES A DAY)
     Route: 048
  2. LYRICA [Suspect]
     Active Substance: PREGABALIN
     Dosage: 50 MG, 2X/DAY (I TAKE MORNING AND NIGHT)
     Route: 048
  3. LYRICA [Suspect]
     Active Substance: PREGABALIN
     Dosage: 50 MG, 3X/DAY
     Route: 048
  4. LYRICA [Suspect]
     Active Substance: PREGABALIN
     Dosage: 150 MG, DAILY
     Route: 048
  5. LYRICA [Suspect]
     Active Substance: PREGABALIN
     Dosage: 50 MG, 3X/DAY
     Route: 048
  6. VASOTEC [Concomitant]
     Active Substance: ENALAPRIL MALEATE
     Indication: Hypertension
     Dosage: 10 MG, 2X/DAY
  7. KLOR-CON [Concomitant]
     Active Substance: POTASSIUM CHLORIDE
     Indication: Blood potassium abnormal
     Dosage: 20 MEQ, 3X/DAY
  8. KLOR-CON [Concomitant]
     Active Substance: POTASSIUM CHLORIDE
     Indication: Nephrolithiasis
  9. FUROSEMIDE [Concomitant]
     Active Substance: FUROSEMIDE
     Indication: Renal lithiasis prophylaxis
     Dosage: 40 MG, 1X/DAY
     Dates: start: 1995
  10. FUROSEMIDE [Concomitant]
     Active Substance: FUROSEMIDE
     Indication: Nephrolithiasis
  11. PRILOSEC [Concomitant]
     Active Substance: OMEPRAZOLE MAGNESIUM
     Indication: Dyspepsia
     Dosage: 20 MG, 1X/DAY
     Dates: start: 199601
  12. LIPITOR [Concomitant]
     Active Substance: ATORVASTATIN CALCIUM
     Indication: Blood cholesterol abnormal
     Dosage: 40 MG, AT NIGHT
  13. STOOL SOFTENER (DOCUSATE) [Concomitant]
     Active Substance: DOCUSATE
     Indication: Constipation
     Dosage: 200 MG, 1X/DAY
     Dates: start: 2007
  14. OSCAL D [Concomitant]
     Active Substance: CALCIUM CARBONATE\CHOLECALCIFEROL
     Indication: Osteoporosis
     Dosage: 500 MG, DAILY
  15. MINERALS\VITAMINS [Concomitant]
     Active Substance: MINERALS\VITAMINS
     Dosage: 1 TABLET, 1X/DAY (EVERY MORNING)
  16. ASPIRIN [Concomitant]
     Active Substance: ASPIRIN
     Indication: Cardiac disorder
     Dosage: 81 MG, 1X/DAY (MORNING)
     Dates: start: 1995
  17. METOPROLOL [Concomitant]
     Active Substance: METOPROLOL
     Indication: Heart rate irregular
     Dosage: 12.5 MG, 1X/DAY
     Dates: start: 2007
  18. METOPROLOL [Concomitant]
     Active Substance: METOPROLOL
     Dosage: 12.5 MG, 2X/DAY
     Dates: start: 20081222
  19. SUPER VITAMIN B COMPLEX [Concomitant]
     Indication: Osteoporosis
     Dosage: 1 TABLET, 1X/DAY
     Dates: start: 2015
  20. SUPER VITAMIN B COMPLEX [Concomitant]
     Indication: Muscle spasms
     Dosage: 5000 IU, UNK
  21. FOLIC ACID [Concomitant]
     Active Substance: FOLIC ACID
     Indication: Cardiac disorder
     Dosage: 1 MG, 1X/DAY
     Dates: start: 2006
  22. VITAMIN D3 [Concomitant]
     Active Substance: CHOLECALCIFEROL
     Indication: Bone disorder
     Dosage: 5000 IU, 1X/DAY (EVERY MORNING)
     Dates: start: 2009
  23. VITAMIN D3 [Concomitant]
     Active Substance: CHOLECALCIFEROL
     Indication: Osteoporosis
  24. FOSAMAX [Concomitant]
     Active Substance: ALENDRONATE SODIUM
     Indication: Bone disorder
     Dosage: 70 MG, WEEKLY
     Dates: start: 2006
  25. FOSAMAX [Concomitant]
     Active Substance: ALENDRONATE SODIUM
     Indication: Osteoporosis
  26. VOLTAREN [Concomitant]
     Active Substance: DICLOFENAC SODIUM
     Indication: Pain
     Dosage: 2-4 GRAMS, DAILY (USED 2-4X/DAY)
     Dates: start: 2013
  27. ESTROVEN MAXIMUM STRENGTH + ENERGY [Concomitant]
     Indication: Hot flush
     Dosage: 1 TABLET, 1X/DAY
     Dates: start: 2008
  28. ZETIA [Concomitant]
     Active Substance: EZETIMIBE
     Indication: Blood cholesterol abnormal
     Dosage: 10 MG, 1X/DAY (AT NIGHT)
     Dates: start: 20151221
  29. PREMARIN [Concomitant]
     Active Substance: ESTROGENS, CONJUGATED
     Dosage: UNK
  30. FORTEO [Concomitant]
     Active Substance: TERIPARATIDE
     Indication: Bone disorder
     Dosage: UNK
     Dates: start: 200901
  31. HYDROCODONE [Concomitant]
     Active Substance: HYDROCODONE
     Indication: Pain
     Dosage: 5/325 MG, 1 TABLET EVERY 6 HOURS
  32. HYDROCODONE [Concomitant]
     Active Substance: HYDROCODONE
     Indication: Arthritis
     Dosage: 1 TABLET, 4X/DAY (7.5/325 MG, EVERY 6 HOURS)
  33. ENALAPRIL [Concomitant]
     Active Substance: ENALAPRIL
     Indication: Hypertension
     Dosage: 10 MG, 2X/DAY
  34. CALTRATE WITH VITAMIN D [Concomitant]
     Active Substance: CALCIUM CARBONATE\CHOLECALCIFEROL
     Dosage: 600 MG, 1X/DAY (MORNING)

REACTIONS (26)
  - Intentional product misuse [Recovered/Resolved]
  - Nephrolithiasis [Recovered/Resolved]
  - Gas poisoning [Recovered/Resolved]
  - Joint range of motion decreased [Recovered/Resolved]
  - Femur fracture [Recovered/Resolved]
  - Femur fracture [Recovered/Resolved]
  - Fall [Unknown]
  - Granulomatous liver disease [Recovered/Resolved]
  - Brain neoplasm [Recovered/Resolved]
  - Exostosis [Recovered/Resolved]
  - Bone neoplasm [Recovered/Resolved]
  - Dyspepsia [Recovered/Resolved]
  - Dry eye [Recovered/Resolved]
  - Weight increased [Recovered/Resolved]
  - Cataract [Recovered/Resolved]
  - Arthritis [Recovered/Resolved]
  - Trigger finger [Recovered/Resolved]
  - Ingrowing nail [Recovered/Resolved]
  - Large intestine polyp [Recovered/Resolved]
  - Cardiac disorder [Recovered/Resolved]
  - Upper limb fracture [Unknown]
  - Gait inability [Recovered/Resolved]
  - Heart rate irregular [Not Recovered/Not Resolved]
  - Blood calcium increased [Recovered/Resolved]
  - Stress [Recovered/Resolved]
  - Hot flush [Not Recovered/Not Resolved]

NARRATIVE: CASE EVENT DATE: 19891001
